FAERS Safety Report 8929234 (Version 1)
Quarter: 2012Q4

REPORT INFORMATION
  Report Type: Spontaneous
  Country: GB (occurrence: None)
  Receive Date: 20121120
  Receipt Date: 20121120
  Transmission Date: 20130627
  Serious: Yes (Disabling)
  Sender: FDA-Public Use
  Company Number: AUR-APL-2012-04868

PATIENT
  Age: 48 Year
  Sex: Male

DRUGS (10)
  1. ALENDRONIC ACID (ALENDRONIC ACID) [Suspect]
     Indication: OSTEOPOROSIS PROPHYLAXIS
     Dosage: (70 mg,1 in 1 wk)
     Route: 048
     Dates: start: 20120528
  2. ADCAL-D3 [Suspect]
     Dosage: (1 dosage forms)
     Route: 048
     Dates: start: 20120414
  3. AZATHIOPRINE [Suspect]
     Dosage: (75 mg)
     Route: 048
     Dates: start: 20120607
  4. LANSOPRAZOLE (LANSOPRAZOLE) [Suspect]
     Route: 048
     Dates: start: 20120528
  5. PREDNISOLONE [Suspect]
     Dosage: (10 mg)
     Route: 048
     Dates: start: 20120518
  6. PREDNISOLONE [Suspect]
     Route: 048
  7. DERMOVATE (CLOBETASOL PROPIONATE) [Concomitant]
  8. BETNOVATE-C [Concomitant]
  9. CORSODYL (CHLORHEXIDINE GLUCONATE) [Concomitant]
  10. DERMOL (CLOBETASOL PROPIONATE) [Concomitant]

REACTIONS (4)
  - Temporomandibular joint syndrome [None]
  - Trismus [None]
  - Tremor [None]
  - Activities of daily living impaired [None]
